FAERS Safety Report 9540488 (Version 3)
Quarter: 2013Q4

REPORT INFORMATION
  Report Type: Report from Study
  Country: US (occurrence: US)
  Receive Date: 20130920
  Receipt Date: 20131021
  Transmission Date: 20140711
  Serious: Yes (Hospitalization, Other)
  Sender: FDA-Public Use
  Company Number: US-ABBVIE-13P-163-1127854-00

PATIENT
  Age: 58 Year
  Sex: Female
  Weight: 61.29 kg

DRUGS (14)
  1. HUMIRA [Suspect]
     Indication: PSORIASIS
     Route: 058
     Dates: start: 20130402
  2. DILANTIN [Concomitant]
     Indication: EPILEPSY
     Route: 048
  3. SINEMET [Concomitant]
     Indication: PARKINSON^S DISEASE
     Dosage: 25MG/100MG TWICE DAILY
     Route: 048
  4. SIMVASTATIN [Concomitant]
     Indication: BLOOD CHOLESTEROL INCREASED
     Dosage: AT NIGHT
     Route: 048
  5. LISINOPRIL [Concomitant]
     Indication: HYPERTENSION
     Route: 048
  6. BYSTOLIC [Concomitant]
     Indication: HYPERTENSION
     Route: 048
  7. PROZAC [Concomitant]
     Indication: PRODUCT USED FOR UNKNOWN INDICATION
  8. TRIAMCINOLONE ACETONIDE [Concomitant]
     Indication: PRODUCT USED FOR UNKNOWN INDICATION
  9. CO REG [Concomitant]
     Indication: PRODUCT USED FOR UNKNOWN INDICATION
  10. CLOBETASOL PROPIONATE [Concomitant]
     Indication: PRODUCT USED FOR UNKNOWN INDICATION
  11. BETAMETHASONE DIPROPIONATE [Concomitant]
     Indication: PRODUCT USED FOR UNKNOWN INDICATION
  12. CERAVE [Concomitant]
     Indication: PRODUCT USED FOR UNKNOWN INDICATION
  13. DERMA-SMOOTHE/FS [Concomitant]
     Indication: PRODUCT USED FOR UNKNOWN INDICATION
  14. DERMA-SMOOTHE-FS [Concomitant]
     Indication: PRODUCT USED FOR UNKNOWN INDICATION

REACTIONS (13)
  - Vascular occlusion [Unknown]
  - Pain in extremity [Recovering/Resolving]
  - Oedema peripheral [Not Recovered/Not Resolved]
  - Asthenia [Recovering/Resolving]
  - Dizziness [Recovering/Resolving]
  - Influenza [Recovered/Resolved]
  - Retching [Recovering/Resolving]
  - Hiatus hernia [Unknown]
  - Abdominal discomfort [Recovered/Resolved]
  - Injection site pain [Not Recovered/Not Resolved]
  - Injection site mass [Recovered/Resolved]
  - Influenza like illness [Recovered/Resolved]
  - Squamous cell carcinoma [Unknown]
